FAERS Safety Report 25278295 (Version 1)
Quarter: 2025Q2

REPORT INFORMATION
  Report Type: Spontaneous
  Country: ES (occurrence: ES)
  Receive Date: 20250507
  Receipt Date: 20250507
  Transmission Date: 20250716
  Serious: Yes (Other)
  Sender: AUROBINDO
  Company Number: ES-AEMPS-1667087

PATIENT
  Age: 72 Year
  Sex: Male
  Weight: 68 kg

DRUGS (9)
  1. VORICONAZOLE [Suspect]
     Active Substance: VORICONAZOLE
     Indication: Bronchopulmonary aspergillosis
     Dosage: 200 MILLIGRAM, TWO TIMES A DAY
     Route: 048
     Dates: start: 20250319, end: 20250323
  2. VORICONAZOLE [Suspect]
     Active Substance: VORICONAZOLE
     Dosage: 250 MILLIGRAM, TWO TIMES A DAY
     Route: 048
     Dates: start: 20250324, end: 20250327
  3. CEFTRIAXONE [Suspect]
     Active Substance: CEFTRIAXONE
     Indication: Respiratory tract infection
     Dosage: 2 GRAM, ONCE A DAY
     Route: 042
     Dates: start: 20250226, end: 20250311
  4. OSELTAMIVIR [Suspect]
     Active Substance: OSELTAMIVIR
     Indication: Influenza
     Dosage: 75 MILLIGRAM, TWO TIMES A DAY
     Route: 048
     Dates: start: 20250226, end: 20250310
  5. LEVOFLOXACIN [Suspect]
     Active Substance: LEVOFLOXACIN
     Indication: Pneumonia
     Dosage: 500 MILLIGRAM, ONCE A DAY
     Route: 042
     Dates: start: 20250227, end: 20250306
  6. AZITHROMYCIN [Suspect]
     Active Substance: AZITHROMYCIN
     Indication: Pneumonia
     Dosage: 500 MILLIGRAM, ONCE A DAY
     Route: 042
     Dates: start: 20250306, end: 20250309
  7. AMBISOME [Concomitant]
     Active Substance: AMPHOTERICIN B
     Indication: Bronchopulmonary aspergillosis
     Dosage: 300 MILLIGRAM, ONCE A DAY
     Route: 042
     Dates: start: 20250310, end: 20250319
  8. AMBISOME [Concomitant]
     Active Substance: AMPHOTERICIN B
     Dosage: 190 MILLIGRAM, ONCE A DAY
     Route: 042
     Dates: start: 20250327, end: 20250404
  9. AMBISOME [Concomitant]
     Active Substance: AMPHOTERICIN B
     Dosage: 250 MILLIGRAM, ONCE A DAY
     Route: 042
     Dates: start: 20250405

REACTIONS (1)
  - Toxic skin eruption [Recovered/Resolved]

NARRATIVE: CASE EVENT DATE: 20250327
